FAERS Safety Report 20779691 (Version 1)
Quarter: 2022Q2

REPORT INFORMATION
  Report Type: Spontaneous
  Country: US (occurrence: US)
  Receive Date: 20220503
  Receipt Date: 20220503
  Transmission Date: 20220721
  Serious: No
  Sender: FDA-Public Use
  Company Number: US-VER-202100019

PATIENT
  Age: 88 Year
  Sex: Male
  Weight: 64 kg

DRUGS (1)
  1. TRELSTAR [Suspect]
     Active Substance: TRIPTORELIN PAMOATE
     Indication: Product used for unknown indication
     Dosage: TRIPTORELIN PAMOATE FOR INJECTABLE SUSPENSION
     Route: 065

REACTIONS (2)
  - Product dose omission issue [Unknown]
  - Product use issue [Unknown]

NARRATIVE: CASE EVENT DATE: 20210319
